FAERS Safety Report 6492253-3 (Version None)
Quarter: 2009Q4

REPORT INFORMATION
  Report Type: 
  Country: None (occurrence: None)
  Receive Date: 20091214
  Receipt Date: 20091207
  Transmission Date: 20100525
  Serious: Yes (Hospitalization)
  Sender: FDA-Public Use
  Company Number: JP-ELI_LILLY_AND_COMPANY-JP200911007362

PATIENT
  Age: 77 Year
  Sex: Female

DRUGS (6)
  1. GEMZAR [Suspect]
     Indication: BLADDER CANCER
     Dosage: UNK, UNK
     Route: 042
     Dates: start: 20090501
  2. GEMZAR [Suspect]
     Dosage: 1500 MG, OTHER
     Route: 042
     Dates: start: 20091027, end: 20091027
  3. TAXOTERE [Concomitant]
     Indication: BLADDER CANCER
     Dosage: 100 MG, DAILY (1/D)
     Route: 042
     Dates: start: 20091027, end: 20091027
  4. CARBOPLATIN [Concomitant]
     Indication: BLADDER CANCER
     Dosage: 200 MG, DAILY (1/D)
     Route: 042
     Dates: start: 20091027, end: 20091027
  5. DEXART [Concomitant]
     Indication: ALLERGY PROPHYLAXIS
     Dosage: 8 MG, DAILY (1/D)
     Route: 042
     Dates: start: 20091027, end: 20091027
  6. CISPLATIN [Concomitant]
     Indication: BLADDER CANCER
     Route: 042
     Dates: start: 20090501

REACTIONS (1)
  - DUODENAL PERFORATION [None]
